FAERS Safety Report 10073278 (Version 2)
Quarter: 2014Q2

REPORT INFORMATION
  Report Type: Report from Study
  Country: US (occurrence: US)
  Receive Date: 20140411
  Receipt Date: 20140521
  Transmission Date: 20141212
  Serious: Yes (Hospitalization)
  Sender: FDA-Public Use
  Company Number: PHEH2014US007090

PATIENT
  Sex: Male

DRUGS (2)
  1. CLOZARIL [Suspect]
     Dosage: UNK
  2. CLOZARIL [Suspect]
     Dosage: 25 MG, DAILY

REACTIONS (2)
  - Mania [Unknown]
  - Hyperthyroidism [Unknown]
